FAERS Safety Report 16035606 (Version 1)
Quarter: 2019Q1

REPORT INFORMATION
  Report Type: Spontaneous
  Country: US (occurrence: US)
  Receive Date: 20190305
  Receipt Date: 20190305
  Transmission Date: 20190418
  Serious: No
  Sender: FDA-Public Use
  Company Number: US-ASTRAZENECA-2019SE35940

PATIENT
  Age: 88 Year
  Sex: Female

DRUGS (1)
  1. PRILOSEC OTC [Suspect]
     Active Substance: OMEPRAZOLE MAGNESIUM
     Dosage: 1.0DF UNKNOWN
     Route: 048

REACTIONS (4)
  - Incorrect product administration duration [Unknown]
  - Pain [Unknown]
  - Drug ineffective [Unknown]
  - Dyspepsia [Unknown]
